FAERS Safety Report 19918862 (Version 4)
Quarter: 2022Q3

REPORT INFORMATION
  Report Type: Report from Study
  Country: US (occurrence: US)
  Receive Date: 20211005
  Receipt Date: 20220707
  Transmission Date: 20221026
  Serious: Yes (Hospitalization, Other)
  Sender: FDA-Public Use
  Company Number: US-NOVARTISPH-NVSC2021US222403

PATIENT
  Sex: Female

DRUGS (6)
  1. ENTRESTO [Suspect]
     Active Substance: SACUBITRIL\VALSARTAN
     Indication: Product used for unknown indication
     Dosage: 50 MG, BID (24/26 MG)
     Route: 048
     Dates: start: 20210721
  2. METOPROLOL [Suspect]
     Active Substance: METOPROLOL
     Indication: Product used for unknown indication
     Dosage: 50 MG, BID (1/2 TAB)
     Route: 048
     Dates: start: 202109
  3. NAPROXEN [Suspect]
     Active Substance: NAPROXEN
     Indication: Product used for unknown indication
     Dosage: UNK
     Route: 065
  4. HYDROCODONE [Suspect]
     Active Substance: HYDROCODONE
     Indication: Pain
     Dosage: UNK
     Route: 065
  5. HYDROCODONE [Suspect]
     Active Substance: HYDROCODONE
     Indication: Nerve compression
  6. HYDROCODONE [Suspect]
     Active Substance: HYDROCODONE
     Indication: Arthritis

REACTIONS (17)
  - Arthritis [Unknown]
  - Pain [Recovering/Resolving]
  - Nerve compression [Recovering/Resolving]
  - Pneumonia [Unknown]
  - Stress [Unknown]
  - Dyspnoea [Unknown]
  - Crying [Unknown]
  - Ejection fraction abnormal [Unknown]
  - Weight increased [Unknown]
  - Muscle twitching [Unknown]
  - Fatigue [Unknown]
  - Sensory loss [Unknown]
  - Hypoaesthesia [Unknown]
  - Paraesthesia [Unknown]
  - Arthralgia [Unknown]
  - Gait disturbance [Unknown]
  - Wrong technique in product usage process [Unknown]
